FAERS Safety Report 8140680-0 (Version None)
Quarter: 2012Q1

REPORT INFORMATION
  Report Type: 
  Country: None (occurrence: None)
  Receive Date: 20120216
  Receipt Date: 20120209
  Transmission Date: 20120608
  Serious: Yes (Other)
  Sender: FDA-Public Use
  Company Number: US-BAYER-2011-071001

PATIENT
  Age: 40 Year
  Sex: Female
  Weight: 63.492 kg

DRUGS (3)
  1. ASCORBIC ACID [Concomitant]
     Dosage: UNK
  2. YASMIN [Suspect]
     Indication: CONTRACEPTION
     Dosage: UNK
     Dates: start: 20050318, end: 20050826
  3. MULTI-VITAMIN [Concomitant]

REACTIONS (8)
  - DEEP VEIN THROMBOSIS [None]
  - OEDEMA PERIPHERAL [None]
  - ANXIETY [None]
  - INJURY [None]
  - PSYCHOLOGICAL TRAUMA [None]
  - ANHEDONIA [None]
  - FEAR [None]
  - PAIN [None]
